FAERS Safety Report 14105621 (Version 1)
Quarter: 2017Q4

REPORT INFORMATION
  Report Type: Spontaneous
  Country: US (occurrence: US)
  Receive Date: 20171018
  Receipt Date: 20171018
  Transmission Date: 20180321
  Serious: No
  Sender: FDA-Public Use
  Company Number: US-009507513-1710USA002767

PATIENT
  Age: 35 Year
  Sex: Female

DRUGS (1)
  1. NUVARING [Suspect]
     Active Substance: ETHINYL ESTRADIOL\ETONOGESTREL
     Indication: CONTRACEPTION
     Dosage: EVERY 3 TO 4 WEEKS
     Route: 067
     Dates: start: 20171004, end: 20171004

REACTIONS (4)
  - Dizziness [Unknown]
  - Confusional state [Unknown]
  - Visual impairment [Unknown]
  - Breast tenderness [Unknown]

NARRATIVE: CASE EVENT DATE: 20171004
